FAERS Safety Report 8475991-2 (Version None)
Quarter: 2012Q2

REPORT INFORMATION
  Report Type: 
  Country: None (occurrence: None)
  Receive Date: 20120628
  Receipt Date: 20120613
  Transmission Date: 20120825
  Serious: Yes (Hospitalization)
  Sender: FDA-Public Use
  Company Number: SE-MERCK-1206USA02109

PATIENT
  Age: 48 Year
  Sex: Male

DRUGS (4)
  1. INTELENCE [Suspect]
     Route: 065
     Dates: start: 20120307, end: 20120309
  2. ISENTRESS [Suspect]
     Indication: HIV INFECTION
     Route: 065
     Dates: start: 20120307, end: 20120309
  3. PREZISTA [Suspect]
     Indication: HIV INFECTION
     Route: 065
     Dates: start: 20120307, end: 20120309
  4. NORVIR [Suspect]
     Route: 065
     Dates: start: 20120307, end: 20120309

REACTIONS (3)
  - BODY TEMPERATURE INCREASED [None]
  - THROMBOCYTOPENIA [None]
  - TRANSAMINASES INCREASED [None]
